FAERS Safety Report 8633193 (Version 2)
Quarter: 2012Q4

REPORT INFORMATION
  Report Type: 
  Country: US (occurrence: US)
  Receive Date: 20120625
  Receipt Date: 20121022
  Transmission Date: 20130627
  Serious: Yes (Death, Hospitalization)
  Sender: FDA-Public Use
  Company Number: US-BRISTOL-MYERS SQUIBB COMPANY-16696387

PATIENT
  Age: 83 Year
  Sex: Male

DRUGS (3)
  1. YERVOY [Suspect]
     Indication: MALIGNANT MELANOMA
     Dosage: No of doses:2
     Route: 042
     Dates: start: 20120301, end: 20120321
  2. QUININE SULFATE [Concomitant]
     Dates: start: 20111201
  3. FISH OIL [Concomitant]
     Dates: start: 20091111

REACTIONS (2)
  - Malignant neoplasm progression [Fatal]
  - Deep vein thrombosis [Unknown]
